FAERS Safety Report 6318073-8 (Version None)
Quarter: 2009Q3

REPORT INFORMATION
  Report Type: 
  Country: None (occurrence: None)
  Receive Date: 20090821
  Receipt Date: 20090812
  Transmission Date: 20100115
  Serious: Yes (Other)
  Sender: FDA-Public Use
  Company Number: BR-ABBOTT-09P-020-0591950-00

PATIENT
  Sex: Male
  Weight: 88 kg

DRUGS (20)
  1. HUMIRA [Suspect]
     Indication: ANKYLOSING SPONDYLITIS
     Route: 058
     Dates: end: 20070101
  2. METHOTREXATE [Concomitant]
     Indication: ANKYLOSING SPONDYLITIS
     Route: 058
     Dates: start: 20090701
  3. METHOTREXATE [Concomitant]
     Route: 048
  4. ETANERCEPT [Concomitant]
     Indication: ANKYLOSING SPONDYLITIS
     Route: 058
     Dates: start: 20080201
  5. TRAMADOL [Concomitant]
     Indication: PAIN
     Route: 058
  6. PANTOPRAZOLE SODIUM [Concomitant]
     Indication: GASTRITIS
     Route: 048
     Dates: start: 20040101
  7. PANTOPRAZOLE SODIUM [Concomitant]
     Indication: PEPTIC ULCER
  8. OMEPRAZOLE [Concomitant]
     Indication: GASTRITIS
     Route: 048
     Dates: start: 20040101
  9. OMEPRAZOLE [Concomitant]
     Indication: PEPTIC ULCER
  10. DIMENHYDRINATE [Concomitant]
     Indication: NAUSEA
     Route: 048
  11. DIMENHYDRINATE [Concomitant]
     Indication: ABDOMINAL PAIN UPPER
  12. METOCLOPRAMIDE [Concomitant]
     Indication: ABDOMINAL PAIN UPPER
     Route: 048
  13. METOCLOPRAMIDE [Concomitant]
     Indication: NAUSEA
  14. CYCLOBENZAPRINE [Concomitant]
     Indication: MUSCLE RELAXANT THERAPY
     Route: 048
     Dates: start: 20051201
  15. CLONAZEPAM [Concomitant]
     Indication: INSOMNIA
     Route: 048
     Dates: start: 20051201
  16. TRAZODONE HCL [Concomitant]
     Indication: SLEEP DISORDER THERAPY
     Route: 048
     Dates: start: 20051201
  17. MIDAZOLAM HCL [Concomitant]
     Indication: SLEEP DISORDER THERAPY
     Route: 048
     Dates: start: 20051201
  18. DIAZEPAM [Concomitant]
     Indication: SLEEP DISORDER THERAPY
     Route: 048
     Dates: start: 20051201
  19. SIBUTRAMINE [Concomitant]
     Indication: WEIGHT DECREASED
     Route: 048
     Dates: start: 20051201
  20. SERTRALINE [Concomitant]
     Indication: DEPRESSION
     Route: 048
     Dates: start: 20051201

REACTIONS (6)
  - ANKYLOSING SPONDYLITIS [None]
  - ARRHYTHMIA [None]
  - CHEST PAIN [None]
  - COLONIC POLYP [None]
  - DRUG INEFFECTIVE [None]
  - MITRAL VALVE INCOMPETENCE [None]
